FAERS Safety Report 13460293 (Version 1)
Quarter: 2017Q2

REPORT INFORMATION
  Report Type: Spontaneous
  Country: US (occurrence: US)
  Receive Date: 20170420
  Receipt Date: 20170420
  Transmission Date: 20170830
  Serious: Yes (Other)
  Sender: FDA-Public Use
  Company Number: US-JNJFOC-20170417967

PATIENT
  Sex: Male

DRUGS (7)
  1. RISPERDAL [Suspect]
     Active Substance: RISPERIDONE
     Indication: ABNORMAL BEHAVIOUR
     Dosage: 0.25 MG ONCE IN DAY FOR FEW DAYS AND THEN 0.25 MG TWICE IN A DAY
     Route: 048
     Dates: start: 20110718, end: 20120615
  2. RISPERDAL [Suspect]
     Active Substance: RISPERIDONE
     Indication: EMOTIONAL DISORDER
     Dosage: 0.25 MG ONCE IN DAY FOR FEW DAYS AND THEN 0.25 MG TWICE IN A DAY
     Route: 048
     Dates: start: 20110718, end: 20120615
  3. RISPERDAL [Suspect]
     Active Substance: RISPERIDONE
     Indication: AGGRESSION
     Route: 048
     Dates: start: 20120625
  4. RISPERDAL [Suspect]
     Active Substance: RISPERIDONE
     Indication: ABNORMAL BEHAVIOUR
     Route: 048
     Dates: start: 20120625
  5. RISPERIDONE. [Suspect]
     Active Substance: RISPERIDONE
     Indication: PRODUCT USED FOR UNKNOWN INDICATION
     Route: 065
  6. RISPERDAL [Suspect]
     Active Substance: RISPERIDONE
     Indication: EMOTIONAL DISORDER
     Route: 048
     Dates: start: 20120625
  7. RISPERDAL [Suspect]
     Active Substance: RISPERIDONE
     Indication: AGGRESSION
     Dosage: 0.25 MG ONCE IN DAY FOR FEW DAYS AND THEN 0.25 MG TWICE IN A DAY
     Route: 048
     Dates: start: 20110718, end: 20120615

REACTIONS (3)
  - Obesity [Unknown]
  - Glucose tolerance impaired [Unknown]
  - Breast enlargement [Unknown]

NARRATIVE: CASE EVENT DATE: 2011
